FAERS Safety Report 5377912-8 (Version None)
Quarter: 2007Q3

REPORT INFORMATION
  Report Type: 
  Country: None (occurrence: None)
  Receive Date: 20070703
  Receipt Date: 20070625
  Transmission Date: 20080115
  Serious: Yes (Hospitalization)
  Sender: FDA-Public Use
  Company Number: JP-MERCK-0706USA05005

PATIENT
  Age: 72 Year
  Sex: Female

DRUGS (6)
  1. ZOCOR [Suspect]
     Indication: HYPERLIPIDAEMIA
     Route: 048
  2. ALANTA [Concomitant]
     Route: 048
  3. DEPAS [Concomitant]
     Route: 048
  4. DIOVAN [Concomitant]
     Route: 048
  5. THEOLONG [Concomitant]
     Route: 048
  6. [THERAPY UNSPECIFIED] [Concomitant]
     Route: 065

REACTIONS (1)
  - POLYMYOSITIS [None]
